FAERS Safety Report 17637684 (Version 1)
Quarter: 2020Q2

REPORT INFORMATION
  Report Type: Spontaneous
  Country: US (occurrence: US)
  Receive Date: 20200407
  Receipt Date: 20200407
  Transmission Date: 20200713
  Serious: No
  Sender: FDA-Public Use
  Company Number: US-GLAXOSMITHKLINE-US2020057551

PATIENT
  Age: 39 Year
  Sex: Male

DRUGS (1)
  1. SUMATRIPTAN (SUMATRIPTAN SUCCINATE) NASAL SPRAY [Suspect]
     Active Substance: SUMATRIPTAN SUCCINATE

REACTIONS (7)
  - Cough [Recovered/Resolved]
  - Pyrexia [Recovered/Resolved]
  - Therapeutic response unexpected [Unknown]
  - Drug ineffective [Unknown]
  - Muscular weakness [Recovered/Resolved]
  - Burning sensation [Recovered/Resolved]
  - Diarrhoea [Recovered/Resolved]

NARRATIVE: CASE EVENT DATE: 20200328
